FAERS Safety Report 4325265-6 (Version None)
Quarter: 2004Q1

REPORT INFORMATION
  Report Type: 
  Country: None (occurrence: None)
  Receive Date: 20040324
  Receipt Date: 20040304
  Transmission Date: 20041129
  Serious: Yes (Death, Hospitalization, Other)
  Sender: FDA-Public Use
  Company Number: JP_040102499

PATIENT
  Age: 3 Year
  Sex: Male
  Weight: 14 kg

DRUGS (10)
  1. ONCOVIN [Suspect]
     Indication: NEUROBLASTOMA
     Dosage: 0.4 MG/DAY
     Dates: start: 19990607, end: 19990820
  2. CYCLOPHOSPHAMIDE [Concomitant]
  3. DOXORUBICIN HCL [Concomitant]
  4. IFOMIDE (IFOSFAMIDE) [Concomitant]
  5. ETOPOSIDE [Concomitant]
  6. ZOFRAN [Concomitant]
  7. UROMITEXAN (MESNA) [Concomitant]
  8. FOSMICIN S (FOSFOMYCIN SODIUM) [Concomitant]
  9. CEFPIRAMIDE SODIUM [Concomitant]
  10. DOYLE (ASPOXICILLIN) [Concomitant]

REACTIONS (12)
  - BONE MARROW DEPRESSION [None]
  - CARDIAC FAILURE [None]
  - CARDIOMEGALY [None]
  - INFECTION [None]
  - INTRA-ABDOMINAL HAEMORRHAGE [None]
  - METASTASES TO BONE [None]
  - NEUROBLASTOMA [None]
  - OPPORTUNISTIC INFECTION [None]
  - PNEUMONIA FUNGAL [None]
  - RECURRENT CANCER [None]
  - STEM CELL TRANSPLANT [None]
  - TUMOUR LYSIS SYNDROME [None]
